FAERS Safety Report 26074773 (Version 2)
Quarter: 2025Q4

REPORT INFORMATION
  Report Type: Spontaneous
  Country: US (occurrence: US)
  Receive Date: 20251121
  Receipt Date: 20251121
  Transmission Date: 20260119
  Serious: No
  Sender: SANDOZ
  Company Number: US-SANDOZ-SDZ2025US087361

PATIENT

DRUGS (2)
  1. HYRIMOZ [Suspect]
     Active Substance: ADALIMUMAB-ADAZ
     Indication: Product used for unknown indication
     Dosage: HYRIMOZ (ADALIMUMAB-ADAZ) 40MG  INJECTION
     Route: 058
  2. HYRIMOZ [Suspect]
     Active Substance: ADALIMUMAB-ADAZ
     Indication: Product used for unknown indication
     Dosage: HYRIMOZ (ADALIMUMAB-ADAZ) 40MG  INJECTION
     Route: 058

REACTIONS (2)
  - Injection site bruising [Unknown]
  - Product storage error [Unknown]
